FAERS Safety Report 8618235-0 (Version None)
Quarter: 2012Q3

REPORT INFORMATION
  Report Type: 
  Country: None (occurrence: None)
  Receive Date: 20120824
  Receipt Date: 20120727
  Transmission Date: 20120928
  Serious: No
  Sender: FDA-Public Use
  Company Number: US-009507513-1207USA005244

PATIENT

DRUGS (5)
  1. PROPECIA [Suspect]
     Dosage: UNK UNK, QD
     Route: 048
     Dates: start: 19980601
  2. PROPECIA [Suspect]
     Dosage: 0.5 MG, QD
     Route: 048
  3. PROPECIA [Suspect]
     Dosage: UNK, QID
     Dates: start: 20110701
  4. FLONASE [Concomitant]
  5. PROPECIA [Suspect]
     Dosage: UNK UNK, QD
     Route: 048
     Dates: end: 20120626

REACTIONS (6)
  - FEAR [None]
  - HAIR DISORDER [None]
  - MUSCULOSKELETAL STIFFNESS [None]
  - WRONG TECHNIQUE IN DRUG USAGE PROCESS [None]
  - ALOPECIA [None]
  - LIBIDO DECREASED [None]
